FAERS Safety Report 9454261 (Version 3)
Quarter: 2013Q3

REPORT INFORMATION
  Report Type: Spontaneous
  Country: US (occurrence: US)
  Receive Date: 20130812
  Receipt Date: 20130913
  Transmission Date: 20140515
  Serious: Yes (Other)
  Sender: FDA-Public Use
  Company Number: US-JNJFOC-20130802334

PATIENT
  Sex: Male
  Weight: 28.58 kg

DRUGS (2)
  1. RISPERDAL [Suspect]
     Indication: BIPOLAR DISORDER
     Route: 048
  2. RISPERDAL [Suspect]
     Indication: ANXIETY
     Route: 048

REACTIONS (5)
  - Dysmorphism [Unknown]
  - Gynaecomastia [Recovering/Resolving]
  - Off label use [Unknown]
  - Lethargy [Unknown]
  - Abnormal weight gain [Unknown]
